FAERS Safety Report 17242012 (Version 1)
Quarter: 2020Q1

REPORT INFORMATION
  Report Type: Report from Study
  Country: NL (occurrence: NL)
  Receive Date: 20200107
  Receipt Date: 20200107
  Transmission Date: 20200409
  Serious: Yes (Hospitalization)
  Sender: FDA-Public Use
  Company Number: NL-MYLANLABS-2019M1030934

PATIENT
  Age: 81 Year
  Sex: Male
  Weight: 85 kg

DRUGS (3)
  1. VALSARTAN. [Suspect]
     Active Substance: VALSARTAN
     Indication: CARDIAC FAILURE
     Dosage: 320 MILLIGRAM, QD (160 MG, BID)
     Route: 048
     Dates: start: 20161221
  2. CARVEDILOL. [Suspect]
     Active Substance: CARVEDILOL
     Indication: HYPERTENSION
     Dosage: 6.25 MILLIGRAM, QD (3.125 MG, BID)
     Route: 048
     Dates: start: 20161116, end: 20180913
  3. SACUBITRIL W/VALSARTAN [Suspect]
     Active Substance: SACUBITRIL\VALSARTAN
     Indication: CARDIAC FAILURE
     Dosage: UNK UNK, QD
     Dates: start: 20161221

REACTIONS (3)
  - Atrioventricular block complete [Recovered/Resolved]
  - Bradycardia [Recovered/Resolved]
  - Anaemia [Recovered/Resolved]

NARRATIVE: CASE EVENT DATE: 20180914
